FAERS Safety Report 22266220 (Version 1)
Quarter: 2023Q2

REPORT INFORMATION
  Report Type: Spontaneous
  Country: CN (occurrence: CN)
  Receive Date: 20230428
  Receipt Date: 20230428
  Transmission Date: 20230722
  Serious: Yes (Death)
  Sender: FDA-Public Use
  Company Number: CN-PFIZER INC-PV202300073876

PATIENT
  Sex: Male

DRUGS (1)
  1. AVIBACTAM SODIUM\CEFTAZIDIME [Suspect]
     Active Substance: AVIBACTAM SODIUM\CEFTAZIDIME
     Indication: Product used for unknown indication
     Dosage: 40 UNITS WERE USED IN 2022 AND 27 UNITS WERE USED IN 2023
     Dates: start: 202212, end: 202304

REACTIONS (1)
  - Injury [Fatal]

NARRATIVE: CASE EVENT DATE: 20230401
